FAERS Safety Report 9402647 (Version 1)
Quarter: 2013Q3

REPORT INFORMATION
  Report Type: Spontaneous
  Country: US (occurrence: US)
  Receive Date: 20130716
  Receipt Date: 20130716
  Transmission Date: 20140515
  Serious: Yes (Other)
  Sender: FDA-Public Use
  Company Number: US-ROXANE LABORATORIES, INC.-2013-RO-01143RO

PATIENT
  Sex: Female

DRUGS (2)
  1. DEXAMETHASONE [Suspect]
  2. KEPPRA [Suspect]
     Indication: CONVULSION
     Dosage: 1000 MG

REACTIONS (4)
  - Convulsion [Not Recovered/Not Resolved]
  - Listless [Unknown]
  - Asthenia [Unknown]
  - Tinnitus [Unknown]
